FAERS Safety Report 8004468-3 (Version None)
Quarter: 2011Q4

REPORT INFORMATION
  Report Type: 
  Country: None (occurrence: None)
  Receive Date: 20111221
  Receipt Date: 20111221
  Transmission Date: 20120403
  Serious: Yes (Other)
  Sender: FDA-Public Use
  Company Number: None

PATIENT
  Sex: Female
  Weight: 86.1834 kg

DRUGS (2)
  1. LOTREL [Suspect]
     Indication: HYPERTENSION
     Dosage: 1 DAILY 047
     Dates: start: 20071201, end: 20110411
  2. ATENOLOL [Suspect]
     Indication: HYPERTENSION
     Dosage: 1 DAILY 047
     Dates: start: 20071201, end: 20110411

REACTIONS (3)
  - DRUG ERUPTION [None]
  - SKIN EXFOLIATION [None]
  - ERYTHEMA [None]
